FAERS Safety Report 9410781 (Version 1)
Quarter: 2013Q3

REPORT INFORMATION
  Report Type: Report from Study
  Country: US (occurrence: US)
  Receive Date: 20130719
  Receipt Date: 20130719
  Transmission Date: 20140515
  Serious: Yes (Other)
  Sender: FDA-Public Use
  Company Number: US-US-EMD SERONO, INC.-7224350

PATIENT
  Age: 28 Year
  Sex: Male

DRUGS (2)
  1. REBIF [Suspect]
     Indication: MULTIPLE SCLEROSIS
     Route: 058
     Dates: start: 20080901
  2. IBUPROFEN [Concomitant]
     Indication: PREMEDICATION

REACTIONS (4)
  - Pneumonia [Unknown]
  - Temperature regulation disorder [Not Recovered/Not Resolved]
  - Multiple sclerosis relapse [Unknown]
  - Arthralgia [Not Recovered/Not Resolved]
